FAERS Safety Report 10915749 (Version 1)
Quarter: 2015Q1

REPORT INFORMATION
  Report Type: Spontaneous
  Country: US (occurrence: None)
  Receive Date: 20150311
  Receipt Date: 20150311
  Transmission Date: 20150721
  Serious: Yes (Hospitalization)
  Sender: FDA-Public Use
  Company Number: None

PATIENT
  Age: 66 Year
  Sex: Male
  Weight: 91.4 kg

DRUGS (1)
  1. VANCOMYCIN [Suspect]
     Active Substance: VANCOMYCIN
     Indication: ANTIBIOTIC PROPHYLAXIS
     Route: 042
     Dates: start: 20150225, end: 20150225

REACTIONS (6)
  - Wheezing [None]
  - Blood pressure systolic decreased [None]
  - Oxygen saturation decreased [None]
  - Dyspnoea [None]
  - Urticaria [None]
  - Anaphylactic reaction [None]

NARRATIVE: CASE EVENT DATE: 20150225
